FAERS Safety Report 11291662 (Version 1)
Quarter: 2015Q3

REPORT INFORMATION
  Report Type: Spontaneous
  Country: CA (occurrence: None)
  Receive Date: 20150720
  Receipt Date: 20150720
  Transmission Date: 20151125
  Serious: Yes (Other)
  Sender: FDA-Public Use
  Company Number: None

PATIENT
  Age: 2 Month
  Sex: Female
  Weight: 43 kg

DRUGS (1)
  1. DIAZOXIDE [Suspect]
     Active Substance: DIAZOXIDE
     Indication: HYPOGLYCAEMIA
     Route: 048

REACTIONS (3)
  - Pulmonary hypertension [None]
  - Hyperinsulinism [None]
  - Hypoglycaemia [None]

NARRATIVE: CASE EVENT DATE: 20150717
